FAERS Safety Report 7199143-1 (Version None)
Quarter: 2010Q4

REPORT INFORMATION
  Report Type: 
  Country: None (occurrence: None)
  Receive Date: 20101228
  Receipt Date: 20101214
  Transmission Date: 20110411
  Serious: Yes (Hospitalization, Other)
  Sender: FDA-Public Use
  Company Number: US-CELGENEUS-163-21880-10100286

PATIENT
  Sex: Male

DRUGS (28)
  1. REVLIMID [Suspect]
     Indication: MULTIPLE MYELOMA
     Route: 048
     Dates: start: 20100512, end: 20100809
  2. REVLIMID [Suspect]
     Route: 048
     Dates: start: 20100913
  3. DEXAMETHASONE [Suspect]
     Route: 065
  4. VELCADE [Suspect]
     Route: 065
  5. ANTIBIOTICS [Concomitant]
     Route: 065
  6. OXYCONTIN [Concomitant]
     Indication: PAIN
     Dosage: 5
     Route: 065
  7. CODEINE [Concomitant]
     Indication: PAIN
     Route: 065
  8. ZOMETA [Concomitant]
     Route: 065
  9. METAMUCIL-2 [Concomitant]
     Route: 065
  10. FLUCONAZOLE [Concomitant]
     Route: 065
  11. LEVAQUIN [Concomitant]
     Route: 048
  12. FLEXERIL [Concomitant]
     Route: 065
  13. NEOMYCIN [Concomitant]
     Route: 065
  14. AMITRIPTYLINE [Concomitant]
     Route: 065
  15. ZOFRAN [Concomitant]
     Indication: NAUSEA
     Route: 065
  16. LOMOTIL [Concomitant]
     Route: 065
  17. FOLIC ACID [Concomitant]
     Route: 065
  18. MAGNESIUM OXIDE [Concomitant]
     Route: 065
  19. POTASSIUM CHLORIDE [Concomitant]
     Route: 065
  20. MULTI-VITAMINS [Concomitant]
     Dosage: 1
     Route: 065
  21. VITAMIN B-12 [Concomitant]
     Route: 065
  22. NEUPOGEN [Concomitant]
     Route: 065
  23. MORPHINE [Concomitant]
     Indication: PAIN MANAGEMENT
     Route: 048
     Dates: start: 20101108
  24. MORPHINE [Concomitant]
     Route: 051
     Dates: start: 20101108
  25. OXYCODONE HCL EXTENDED-RELEASE [Concomitant]
     Route: 065
  26. ASPIRIN [Concomitant]
     Route: 065
  27. FLOMAX [Concomitant]
     Route: 065
  28. AMLODIPINE [Concomitant]
     Route: 065

REACTIONS (5)
  - ADDISON'S DISEASE [None]
  - BACK PAIN [None]
  - DIARRHOEA [None]
  - DIZZINESS POSTURAL [None]
  - NEUROPATHY PERIPHERAL [None]
